FAERS Safety Report 9798433 (Version 4)
Quarter: 2014Q1

REPORT INFORMATION
  Report Type: Spontaneous
  Country: BR (occurrence: BR)
  Receive Date: 20140106
  Receipt Date: 20140117
  Transmission Date: 20141002
  Serious: Yes (Other)
  Sender: FDA-Public Use
  Company Number: BR-PFIZER INC-2014000660

PATIENT
  Age: 58 Year
  Sex: Female
  Weight: 92 kg

DRUGS (1)
  1. ATORVASTATIN CALCIUM [Suspect]
     Dosage: UNK
     Dates: start: 2012

REACTIONS (1)
  - Lipoma [Unknown]
